FAERS Safety Report 10043780 (Version 1)
Quarter: 2014Q1

REPORT INFORMATION
  Report Type: Spontaneous
  Country: US (occurrence: US)
  Receive Date: 20140328
  Receipt Date: 20140328
  Transmission Date: 20141002
  Serious: No
  Sender: FDA-Public Use
  Company Number: US-BAYER-2014-045692

PATIENT
  Age: 65 Year
  Sex: Male

DRUGS (4)
  1. ALEVE CAPLET [Suspect]
     Dosage: 1 DF, PRN
     Route: 048
     Dates: start: 20140316, end: 20140323
  2. BAYER ASPIRIN REGIMEN ADULT LOW STRENGTH [Concomitant]
  3. ATENOLOL [Concomitant]
  4. NORVASC [Concomitant]

REACTIONS (1)
  - Off label use [None]
